FAERS Safety Report 8120671-6 (Version None)
Quarter: 2012Q1

REPORT INFORMATION
  Report Type: 
  Country: None (occurrence: None)
  Receive Date: 20120207
  Receipt Date: 20120125
  Transmission Date: 20120608
  Serious: Yes (Death, Life-Threatening)
  Sender: FDA-Public Use
  Company Number: JP-ROCHE-1032617

PATIENT
  Sex: Male

DRUGS (3)
  1. MIRCERA [Suspect]
     Indication: NEPHROGENIC ANAEMIA
     Route: 042
     Dates: start: 20111010, end: 20111114
  2. IRON SUCROSE [Suspect]
     Indication: RENAL FAILURE CHRONIC
     Route: 042
     Dates: start: 20111003, end: 20111112
  3. DEXTROSE [Suspect]
     Indication: PRODUCT USED FOR UNKNOWN INDICATION
     Route: 042

REACTIONS (2)
  - AZOTAEMIA [None]
  - CEREBRAL HAEMORRHAGE [None]
